FAERS Safety Report 6278279-3 (Version None)
Quarter: 2009Q3

REPORT INFORMATION
  Report Type: 
  Country: None (occurrence: None)
  Receive Date: 20090722
  Receipt Date: 20090714
  Transmission Date: 20100115
  Serious: Yes (Other)
  Sender: FDA-Public Use
  Company Number: US-AVENTIS-200915406US

PATIENT
  Sex: Female
  Weight: 66.4 kg

DRUGS (8)
  1. LANTUS [Suspect]
     Route: 058
  2. LISINOPRIL [Concomitant]
  3. METFORMIN HCL [Concomitant]
  4. BUPROPION HCL [Concomitant]
  5. OMEPRAZOLE [Concomitant]
  6. CELEBREX [Concomitant]
  7. PRIMIDONE [Concomitant]
     Dosage: DOSE: 50MG, 1/2 IN THE AM AND 1/2 AT LUNCH AND ? ONE HALF AT BEDTIME
  8. LIBRIUM                            /00011501/ [Concomitant]
     Dosage: DOSE: 10 MG AS NEEDED PER DAY

REACTIONS (1)
  - WEIGHT DECREASED [None]
